FAERS Safety Report 20358334 (Version 8)
Quarter: 2022Q3

REPORT INFORMATION
  Report Type: Report from Study
  Country: CN (occurrence: CN)
  Receive Date: 20220120
  Receipt Date: 20220926
  Transmission Date: 20221026
  Serious: Yes (Hospitalization)
  Sender: FDA-Public Use
  Company Number: CN-PFIZER INC-202200079672

PATIENT
  Age: 67 Year
  Sex: Female
  Weight: 66 kg

DRUGS (5)
  1. EPIRUBICIN HYDROCHLORIDE [Suspect]
     Active Substance: EPIRUBICIN HYDROCHLORIDE
     Indication: Triple negative breast cancer
     Dosage: 90 MG/M2, 1 IN 2 WK (MOST RECENT DOSE BEFORE EVENT 17DEC2021 AND 04JAN2022)
     Route: 042
     Dates: start: 20211118
  2. PACLITAXEL [Suspect]
     Active Substance: PACLITAXEL
     Indication: Triple negative breast cancer
     Dosage: 80 MG/M2, 1 IN 1 WK (MOST RECENT DOSE BEFORE THE EVENT ON 11NOV2021)
     Route: 042
     Dates: start: 20210824
  3. ATEZOLIZUMAB [Suspect]
     Active Substance: ATEZOLIZUMAB
     Indication: Triple negative breast cancer
     Dosage: 840 MG, 1 IN 2 WK (MOST RECENT DOSE BEFORE EVENT ON 17DEC2021 AND 04JAN2022)
     Route: 041
     Dates: start: 20210824
  4. CYCLOPHOSPHAMIDE [Suspect]
     Active Substance: CYCLOPHOSPHAMIDE
     Indication: Triple negative breast cancer
     Dosage: 600 MG/M2, 1 IN 2 WK (MOST RECENT DOSE BEFORE EVENT ON 17DEC2021 AND 04JAN2022)
     Route: 042
     Dates: start: 20211118
  5. PENICILLIN G SODIUM [Concomitant]
     Active Substance: PENICILLIN G SODIUM
     Dosage: UNK
     Dates: start: 20211227, end: 20220202

REACTIONS (2)
  - Bronchitis chronic [Recovered/Resolved]
  - Bronchitis chronic [Recovered/Resolved]

NARRATIVE: CASE EVENT DATE: 20211227
